FAERS Safety Report 5800635-5 (Version None)
Quarter: 2008Q3

REPORT INFORMATION
  Report Type: 
  Country: None (occurrence: None)
  Receive Date: 20080703
  Receipt Date: 20080625
  Transmission Date: 20090109
  Serious: Yes (Hospitalization, Disabling)
  Sender: FDA-Public Use
  Company Number: US-ABBOTT-07P-163-0364356-01

PATIENT
  Sex: Male

DRUGS (2)
  1. RITONAVIR SOFT GELATIN CAPSULES (NOT ADMINISTERED) [Suspect]
     Indication: HIV INFECTION
     Dosage: N/A
     Route: 048
  2. KALETRA [Suspect]
     Indication: HIV INFECTION
     Dosage: 200/50 MILLIGRAMS
     Route: 048
     Dates: start: 20030716

REACTIONS (1)
  - LIGAMENT RUPTURE [None]
